FAERS Safety Report 8390498-9 (Version None)
Quarter: 2012Q2

REPORT INFORMATION
  Report Type: 
  Country: None (occurrence: None)
  Receive Date: 20120529
  Receipt Date: 20120521
  Transmission Date: 20120825
  Serious: Yes (Hospitalization)
  Sender: FDA-Public Use
  Company Number: US-JNJFOC-20120503629

PATIENT
  Sex: Male

DRUGS (6)
  1. MS CONTIN [Concomitant]
     Indication: PAIN
     Dosage: OFF 1-2 DAYS PRIOR
     Route: 065
     Dates: start: 20111001, end: 20120301
  2. MORPHINE SULFATE [Concomitant]
     Indication: POLYNEUROPATHY
     Dosage: 6 HOURS AS NECESSARY OFF 1-2 DAYS PRIOR
     Route: 065
     Dates: start: 20111001, end: 20120301
  3. MS CONTIN [Concomitant]
     Indication: POLYNEUROPATHY
     Dosage: OFF 1-2 DAYS PRIOR
     Route: 065
     Dates: start: 20111001, end: 20120301
  4. NUCYNTA [Suspect]
     Indication: PAIN
     Dosage: OF 6 HOURS AS NECESSARY
     Route: 048
     Dates: start: 20120330, end: 20120331
  5. NEXIUM [Concomitant]
     Indication: GASTROOESOPHAGEAL REFLUX DISEASE
     Dosage: ONCE A DAY
     Route: 065
     Dates: start: 20090101
  6. LISINOPRIL [Concomitant]
     Indication: HYPERTENSION
     Dosage: 20-25MG PER DAY
     Route: 065
     Dates: start: 20090101

REACTIONS (1)
  - MYOCARDIAL INFARCTION [None]
